FAERS Safety Report 9538640 (Version 1)
Quarter: 2013Q2

REPORT INFORMATION
  Report Type: Spontaneous
  Country: US (occurrence: None)
  Receive Date: 20130507
  Receipt Date: 20130507
  Transmission Date: 20140414
  Serious: No
  Sender: FDA-Public Use
  Company Number: PHEH2013US001302

PATIENT
  Sex: Male

DRUGS (2)
  1. AFINITOR [Suspect]
     Dosage: 10 MG, UNK, ORAL
     Route: 048
  2. SANDOSTATIN LAR (OCTREOTIDE ACETATE) [Concomitant]

REACTIONS (1)
  - Malaise [None]
